FAERS Safety Report 8447930-1 (Version None)
Quarter: 2012Q2

REPORT INFORMATION
  Report Type: 
  Country: None (occurrence: None)
  Receive Date: 20120619
  Receipt Date: 20120613
  Transmission Date: 20120825
  Serious: Yes (Other)
  Sender: FDA-Public Use
  Company Number: PHHY2011US15113

PATIENT
  Sex: Female

DRUGS (12)
  1. HERBAL EXTRACTS NOS [Concomitant]
  2. FLOVENT [Concomitant]
  3. TASIGNA [Suspect]
     Indication: CHRONIC MYELOID LEUKAEMIA
     Dosage: 300 MG, BID
     Route: 048
     Dates: start: 20090912
  4. FISH OIL [Concomitant]
  5. COD-LIVER OIL [Concomitant]
  6. ZYRTEC [Concomitant]
  7. CALCIUM [Concomitant]
  8. NEXIUM [Concomitant]
  9. TRAMADOL HCL [Concomitant]
  10. COREG [Concomitant]
  11. COENZYME Q10 [Concomitant]
  12. TRICOR [Concomitant]

REACTIONS (26)
  - LEFT VENTRICULAR HYPERTROPHY [None]
  - COORDINATION ABNORMAL [None]
  - ABDOMINAL DISCOMFORT [None]
  - DECREASED APPETITE [None]
  - GASTROINTESTINAL INFLAMMATION [None]
  - PALPITATIONS [None]
  - LACTOSE INTOLERANCE [None]
  - GINGIVAL BLEEDING [None]
  - FATIGUE [None]
  - EPISTAXIS [None]
  - PLATELET COUNT DECREASED [None]
  - POLYP [None]
  - PAIN [None]
  - CHEST PAIN [None]
  - ARTHROPATHY [None]
  - DYSPNOEA [None]
  - BLOOD PRESSURE INCREASED [None]
  - OSTEOPENIA [None]
  - MEMORY IMPAIRMENT [None]
  - RETCHING [None]
  - GASTROOESOPHAGEAL REFLUX DISEASE [None]
  - ERUCTATION [None]
  - COUGH [None]
  - NAUSEA [None]
  - LUNG DISORDER [None]
  - RHINORRHOEA [None]
